FAERS Safety Report 8873956 (Version 1)
Quarter: 2012Q4

REPORT INFORMATION
  Report Type: Report from Study
  Country: US (occurrence: US)
  Receive Date: 20121030
  Receipt Date: 20121030
  Transmission Date: 20130627
  Serious: Yes (Hospitalization, Other)
  Sender: FDA-Public Use
  Company Number: US-ABBOTT-12P-163-0999162-00

PATIENT
  Age: 33 Year
  Sex: Female
  Weight: 55.39 kg

DRUGS (21)
  1. HUMIRA [Suspect]
     Route: 058
     Dates: start: 20080819, end: 20080925
  2. PRENATAL VITAMINS NOS [Concomitant]
     Indication: PRODUCT USED FOR UNKNOWN INDICATION
     Route: 048
     Dates: start: 20080719, end: 20080910
  3. PRENATAL VITAMINS NOS [Concomitant]
     Route: 048
     Dates: start: 20080911
  4. FLINTSTONES MULTIPLE VITAMINS [Concomitant]
     Indication: PRODUCT USED FOR UNKNOWN INDICATION
     Route: 048
     Dates: start: 20080601, end: 20080825
  5. IRON [Concomitant]
     Indication: ANAEMIA
     Route: 048
     Dates: start: 20080602, end: 20080829
  6. IRON [Concomitant]
     Indication: ANAEMIA
     Route: 048
     Dates: start: 20080830
  7. BENTYL [Concomitant]
     Indication: CROHN^S DISEASE
     Route: 048
     Dates: start: 20080715, end: 20080716
  8. ROCEPHIN [Concomitant]
     Indication: CROHN^S DISEASE
     Dosage: 2 BAGS IV
     Route: 042
     Dates: start: 20080715, end: 20080716
  9. ANESTHETICS, LOCAL [Concomitant]
     Indication: COLONOSCOPY
     Dates: start: 20080716, end: 20080716
  10. PREDNISONE [Concomitant]
     Indication: CROHN^S DISEASE
     Route: 048
     Dates: start: 20080501, end: 20080711
  11. PREDNISONE [Concomitant]
     Route: 048
     Dates: start: 20080712, end: 20080815
  12. PREDNISONE [Concomitant]
     Route: 048
     Dates: start: 20080816, end: 20080822
  13. PREDNISONE [Concomitant]
     Route: 048
     Dates: start: 20080823
  14. ZOFRAN [Concomitant]
     Indication: NAUSEA
     Route: 048
     Dates: start: 20080715, end: 20080726
  15. ZOFRAN [Concomitant]
     Route: 048
     Dates: start: 20080601, end: 20080725
  16. DARVOCET [Concomitant]
     Indication: CROHN^S DISEASE
     Route: 048
     Dates: start: 20080715, end: 20080726
  17. TYLENOL EXTRA STRENGTH [Concomitant]
     Indication: PYREXIA
     Route: 048
     Dates: start: 20080620, end: 20080708
  18. TYLENOL [Concomitant]
     Indication: HEADACHE
     Route: 048
     Dates: start: 20080715, end: 20080726
  19. TYLENOL [Concomitant]
     Indication: BACK PAIN
     Route: 048
     Dates: start: 20080819, end: 20080928
  20. HUMIRA [Suspect]
     Indication: CROHN^S DISEASE
     Dates: start: 20080722, end: 20080722
  21. HUMIRA [Suspect]
     Route: 058
     Dates: start: 20080805, end: 20080805

REACTIONS (5)
  - Nasopharyngitis [Recovered/Resolved]
  - Dyspepsia [Recovered/Resolved]
  - Headache [Recovered/Resolved]
  - Premature delivery [Unknown]
  - Anaemia [Unknown]
